FAERS Safety Report 14634951 (Version 1)
Quarter: 2018Q1

REPORT INFORMATION
  Report Type: Spontaneous
  Country: FR (occurrence: FR)
  Receive Date: 20180314
  Receipt Date: 20180314
  Transmission Date: 20180509
  Serious: Yes (Hospitalization)
  Sender: FDA-Public Use
  Company Number: PHHY2018FR041529

PATIENT
  Age: 31 Year
  Sex: Female

DRUGS (2)
  1. ALPRAZOLAM. [Suspect]
     Active Substance: ALPRAZOLAM
     Indication: INTENTIONAL OVERDOSE
     Dosage: 5 MG, UNK
     Route: 048
  2. XEROQUEL LP [Suspect]
     Active Substance: QUETIAPINE FUMARATE
     Indication: INTENTIONAL OVERDOSE
     Route: 048

REACTIONS (4)
  - Tachycardia [Recovered/Resolved]
  - Poisoning deliberate [Recovered/Resolved]
  - Anticholinergic syndrome [Recovered/Resolved]
  - Somnolence [Recovered/Resolved]

NARRATIVE: CASE EVENT DATE: 20171204
